FAERS Safety Report 8241245-2 (Version None)
Quarter: 2012Q1

REPORT INFORMATION
  Report Type: 
  Country: None (occurrence: None)
  Receive Date: 20120328
  Receipt Date: 20120321
  Transmission Date: 20120608
  Serious: No
  Sender: FDA-Public Use
  Company Number: US-PFIZER INC-2012074875

PATIENT
  Age: 48 Year
  Sex: Female

DRUGS (2)
  1. NORGESTREL AND ETHINYL ESTRADIOL [Suspect]
     Indication: HORMONE LEVEL ABNORMAL
  2. NORGESTREL AND ETHINYL ESTRADIOL [Suspect]
     Indication: OFF LABEL USE

REACTIONS (1)
  - MENSTRUATION IRREGULAR [None]
